FAERS Safety Report 13492240 (Version 1)
Quarter: 2017Q2

REPORT INFORMATION
  Report Type: Spontaneous
  Country: US (occurrence: US)
  Receive Date: 20170427
  Receipt Date: 20170427
  Transmission Date: 20170830
  Serious: Yes (Death, Hospitalization)
  Sender: FDA-Public Use
  Company Number: US-CELGENEUS-USA-20170406102

PATIENT
  Age: 68 Year
  Sex: Male

DRUGS (7)
  1. AZACITIDINE. [Suspect]
     Active Substance: AZACITIDINE
     Indication: ESSENTIAL THROMBOCYTHAEMIA
     Route: 065
  2. RUXOLITINIB [Suspect]
     Active Substance: RUXOLITINIB
     Indication: MYELOFIBROSIS
  3. DUVELISIB [Suspect]
     Active Substance: DUVELISIB
     Indication: MYELOFIBROSIS
  4. ASPIRIN. [Concomitant]
     Active Substance: ASPIRIN
     Indication: PRODUCT USED FOR UNKNOWN INDICATION
     Route: 065
  5. AZACITIDINE. [Suspect]
     Active Substance: AZACITIDINE
     Indication: MYELOFIBROSIS
  6. RUXOLITINIB [Suspect]
     Active Substance: RUXOLITINIB
     Indication: ESSENTIAL THROMBOCYTHAEMIA
     Route: 065
  7. DUVELISIB [Suspect]
     Active Substance: DUVELISIB
     Indication: ESSENTIAL THROMBOCYTHAEMIA
     Route: 065

REACTIONS (4)
  - Gingival bleeding [Unknown]
  - Infection [Unknown]
  - Acute myeloid leukaemia [Fatal]
  - Platelet count increased [Unknown]
